FAERS Safety Report 12023601 (Version 1)
Quarter: 2016Q1

REPORT INFORMATION
  Report Type: Report from Study
  Country: US (occurrence: US)
  Receive Date: 20160206
  Receipt Date: 20160206
  Transmission Date: 20160526
  Serious: No
  Sender: FDA-Public Use
  Company Number: US-ABBVIE-15K-163-1478985-00

PATIENT
  Age: 53 Year
  Sex: Female

DRUGS (1)
  1. HUMIRA [Suspect]
     Active Substance: ADALIMUMAB
     Indication: PSORIATIC ARTHROPATHY
     Route: 058

REACTIONS (8)
  - Nausea [Not Recovered/Not Resolved]
  - Erythema [Recovering/Resolving]
  - Feeling hot [Unknown]
  - Blood pressure increased [Recovered/Resolved]
  - Feeling abnormal [Unknown]
  - Flushing [Not Recovered/Not Resolved]
  - Paraesthesia [Recovered/Resolved]
  - Urticaria [Recovered/Resolved]

NARRATIVE: CASE EVENT DATE: 20151006
